FAERS Safety Report 23680528 (Version 1)
Quarter: 2024Q1

REPORT INFORMATION
  Report Type: Spontaneous
  Country: CA (occurrence: CA)
  Receive Date: 20240328
  Receipt Date: 20240328
  Transmission Date: 20240410
  Serious: Yes (Other)
  Sender: FDA-Public Use
  Company Number: CA-CELLTRION INC.-2024CA001043

PATIENT

DRUGS (12)
  1. INFLECTRA [Suspect]
     Active Substance: INFLIXIMAB-DYYB
     Indication: Crohn^s disease
     Dosage: 5 MG/KG, WEEK 0,2,6 THEN EVERY 8 WEEKS
     Route: 042
     Dates: start: 20220817, end: 20231220
  2. INFLECTRA [Suspect]
     Active Substance: INFLIXIMAB-DYYB
     Dosage: 5 MG/KG, WEEK 0,2,6 THEN EVERY 8 WEEKS
     Route: 042
     Dates: start: 20231220
  3. INFLECTRA [Suspect]
     Active Substance: INFLIXIMAB-DYYB
     Dosage: 10 MG/KG, EVERY 8 WEEKS, STAT DOSE THEN EVERY 8 WEEKS (1100 MG, AFTER 5 WEEKS)
     Route: 042
     Dates: start: 20240124
  4. INFLECTRA [Suspect]
     Active Substance: INFLIXIMAB-DYYB
     Dosage: 10 MG/KG, EVERY 8 WEEKS (DOSAGE ADMINISTERED: 1100 MG EVERY 8 WEEKS)
     Route: 042
     Dates: start: 20240320
  5. CALCIUM [Concomitant]
     Active Substance: CALCIUM
     Dosage: UNK
  6. CANDESARTAN [Concomitant]
     Active Substance: CANDESARTAN
     Dosage: UNK
  7. CITALOPRAM [Concomitant]
     Active Substance: CITALOPRAM\CITALOPRAM HYDROBROMIDE
     Dosage: UNK
  8. PREDNISONE [Concomitant]
     Active Substance: PREDNISONE
     Dosage: 30 MG (TAPER DOSE)
     Route: 065
     Dates: end: 20240120
  9. PREDNISONE [Concomitant]
     Active Substance: PREDNISONE
     Dosage: 30 MG (TAPER DOSE)
     Route: 065
  10. ROSUVASTATIN [Concomitant]
     Active Substance: ROSUVASTATIN
     Dosage: UNK
  11. TRAZODONE [Concomitant]
     Active Substance: TRAZODONE HYDROCHLORIDE
     Dosage: UNK
  12. CHOLECALCIFEROL [Concomitant]
     Active Substance: CHOLECALCIFEROL
     Dosage: UNK

REACTIONS (8)
  - Intestinal operation [Unknown]
  - Condition aggravated [Not Recovered/Not Resolved]
  - Drug level below therapeutic [Unknown]
  - Anal fissure [Recovered/Resolved]
  - Therapeutic response shortened [Not Recovered/Not Resolved]
  - Off label use [Unknown]
  - Intentional product use issue [Unknown]
  - Off label use [Unknown]

NARRATIVE: CASE EVENT DATE: 20240101
